FAERS Safety Report 25711474 (Version 2)
Quarter: 2025Q3

REPORT INFORMATION
  Report Type: Report from Study
  Country: EU (occurrence: EU)
  Receive Date: 20250821
  Receipt Date: 20250917
  Transmission Date: 20251020
  Serious: Yes (Other)
  Sender: TEVA
  Company Number: EU-TEVA-VS-3363275

PATIENT
  Age: 74 Year
  Sex: Female

DRUGS (5)
  1. TERIPARATIDE [Suspect]
     Active Substance: TERIPARATIDE
     Indication: Osteoporosis
     Route: 065
     Dates: start: 20250206, end: 20250811
  2. VOLTAREN [Concomitant]
     Active Substance: DICLOFENAC SODIUM
     Indication: Pain
     Dosage: 1-0-0; START: A LONG TIME AGO; END STILL USING
  3. FENTANYL [Concomitant]
     Active Substance: FENTANYL
     Indication: Pain
     Dosage: 0.75 EVERY 72H, START: A LONG TIME AGO; END: STILL USING
  4. TRAMADOL HYDROCHLORIDE [Concomitant]
     Active Substance: TRAMADOL HYDROCHLORIDE
     Indication: Pain
  5. FAMOTIDINE [Concomitant]
     Active Substance: FAMOTIDINE
     Indication: Antacid therapy
     Dosage: FAMOTIDINE 20, ONE IN THE MORNING, START: A LONG TIME AGO; END: STILL USING.

REACTIONS (5)
  - Muscular weakness [Not Recovered/Not Resolved]
  - Injection site haematoma [Recovered/Resolved]
  - Paraesthesia [Not Recovered/Not Resolved]
  - Injection site pain [Not Recovered/Not Resolved]
  - Pain [Not Recovered/Not Resolved]

NARRATIVE: CASE EVENT DATE: 20250206
